FAERS Safety Report 6637068-8 (Version None)
Quarter: 2010Q1

REPORT INFORMATION
  Report Type: 
  Country: None (occurrence: None)
  Receive Date: 20100310
  Receipt Date: 20100222
  Transmission Date: 20100710
  Serious: Yes (Disabling, Other)
  Sender: FDA-Public Use
  Company Number: 2008-1200

PATIENT
  Age: 84 Year
  Sex: Male
  Weight: 56 kg

DRUGS (4)
  1. SOMATULINE DEPOT [Suspect]
     Indication: POST GASTRIC SURGERY SYNDROME
     Dosage: 60 MG, 1 IN 1 M), INTRAMUSCULAR
     Route: 030
     Dates: start: 20070705, end: 20080716
  2. OMEPRAZOLE [Concomitant]
  3. HYDROXOCOBALAMIN (HYDROXOCOBALAMIN) [Concomitant]
  4. ADALAT CC [Concomitant]

REACTIONS (4)
  - ANAEMIA [None]
  - BODY MASS INDEX DECREASED [None]
  - OFF LABEL USE [None]
  - WEIGHT DECREASED [None]
